FAERS Safety Report 17030582 (Version 1)
Quarter: 2019Q4

REPORT INFORMATION
  Report Type: Spontaneous
  Country: US (occurrence: US)
  Receive Date: 20191011
  Receipt Date: 20191011
  Transmission Date: 20200122
  Serious: No
  Sender: FDA-Public Use
  Company Number: None

PATIENT
  Age: 56 Year
  Sex: Female

DRUGS (2)
  1. DALFAMPRIDINE ER  10MG  AUROBINDO PHARMA [Suspect]
     Active Substance: DALFAMPRIDINE
     Indication: MULTIPLE SCLEROSIS
     Route: 048
     Dates: start: 201905
  2. MAYZENT [Concomitant]
     Active Substance: SIPONIMOD

REACTIONS (2)
  - Headache [None]
  - Eye pain [None]

NARRATIVE: CASE EVENT DATE: 201910
